FAERS Safety Report 18886995 (Version 2)
Quarter: 2021Q4

REPORT INFORMATION
  Report Type: Report from Study
  Country: NL (occurrence: NL)
  Receive Date: 20210212
  Receipt Date: 20211005
  Transmission Date: 20220303
  Serious: Yes (Hospitalization)
  Sender: FDA-Public Use
  Company Number: NL-BIOMARINAP-NL-2020-129053

PATIENT
  Age: 6 Year
  Sex: Male
  Weight: 12.9 kg

DRUGS (1)
  1. VIMIZIM [Suspect]
     Active Substance: ELOSULFASE ALFA
     Indication: Mucopolysaccharidosis IV
     Dosage: 2 MILLIGRAM/KILOGRAM, QW
     Route: 042
     Dates: start: 20160729

REACTIONS (1)
  - Limb deformity [Recovered/Resolved]

NARRATIVE: CASE EVENT DATE: 20190305
